FAERS Safety Report 9057577 (Version 2)
Quarter: 2013Q1

REPORT INFORMATION
  Report Type: Spontaneous
  Country: US (occurrence: US)
  Receive Date: 20130204
  Receipt Date: 20130318
  Transmission Date: 20140127
  Serious: Yes (Disabling)
  Sender: FDA-Public Use
  Company Number: US-PFIZER INC-2013045159

PATIENT
  Age: 87 Year
  Sex: Female
  Weight: 48.5 kg

DRUGS (5)
  1. NORVASC [Suspect]
     Indication: HYPERTENSION
     Dosage: 10 MG, UNK
     Route: 048
     Dates: start: 2003
  2. LOVASTATIN [Concomitant]
     Dosage: 40 MG, 1X/DAY
  3. METFORMIN [Concomitant]
     Indication: DIABETES MELLITUS
     Dosage: 500 MG, 1X/DAY
  4. ASPIRIN [Concomitant]
     Dosage: 81 MG, UNK
  5. LOSARTAN [Concomitant]
     Dosage: 50 MG, 2X/DAY
     Route: 048

REACTIONS (1)
  - Hearing impaired [Not Recovered/Not Resolved]
